FAERS Safety Report 5630308-3 (Version None)
Quarter: 2008Q1

REPORT INFORMATION
  Report Type: 
  Country: None (occurrence: None)
  Receive Date: 20080219
  Receipt Date: 20080207
  Transmission Date: 20080703
  Serious: Yes (Other)
  Sender: FDA-Public Use
  Company Number: JP-SANOFI-SYNTHELABO-A01200801681

PATIENT
  Age: 71 Year
  Sex: Female

DRUGS (6)
  1. DIGOXIN [Concomitant]
     Route: 048
     Dates: end: 20080130
  2. LEUCOVORIN CALCIUM [Suspect]
     Dosage: UNK
     Route: 042
  3. OXALIPLATIN [Suspect]
     Indication: COLON CANCER
     Route: 042
  4. OXALIPLATIN [Suspect]
     Indication: METASTASES TO LYMPH NODES
     Route: 042
  5. FLUOROURACIL [Suspect]
     Dosage: UNK
     Route: 042
  6. ASPIRIN [Concomitant]
     Route: 048
     Dates: end: 20080130

REACTIONS (1)
  - BONE MARROW FAILURE [None]
